FAERS Safety Report 23134007 (Version 1)
Quarter: 2023Q4

REPORT INFORMATION
  Report Type: Spontaneous
  Country: US (occurrence: None)
  Receive Date: 20231031
  Receipt Date: 20231031
  Transmission Date: 20240109
  Serious: Yes (Hospitalization)
  Sender: FDA-Public Use
  Company Number: None

PATIENT
  Sex: Female

DRUGS (2)
  1. STELARA [Suspect]
     Active Substance: USTEKINUMAB
     Indication: Colitis ulcerative
     Dosage: OTHER FREQUENCY : EVERY9WEEKS;?
     Route: 058
     Dates: start: 202304
  2. STELARA [Suspect]
     Active Substance: USTEKINUMAB
     Indication: Colitis

REACTIONS (1)
  - Colitis ulcerative [None]
